FAERS Safety Report 24251674 (Version 1)
Quarter: 2024Q3

REPORT INFORMATION
  Report Type: Spontaneous
  Country: US (occurrence: US)
  Receive Date: 20240827
  Receipt Date: 20240827
  Transmission Date: 20241017
  Serious: Yes (Other)
  Sender: NOVO NORDISK
  Company Number: US-NOVOPROD-1271853

PATIENT
  Sex: Female

DRUGS (1)
  1. NOVOLIN R [Suspect]
     Active Substance: INSULIN HUMAN
     Indication: Type 2 diabetes mellitus
     Dosage: UNK
     Route: 058
     Dates: start: 20240101

REACTIONS (4)
  - Non-Hodgkin^s lymphoma [Recovered/Resolved]
  - Breast cancer [Not Recovered/Not Resolved]
  - Localised infection [Recovered/Resolved]
  - Blood glucose decreased [Recovered/Resolved]
